FAERS Safety Report 6083009-4 (Version None)
Quarter: 2009Q1

REPORT INFORMATION
  Report Type: 
  Country: None (occurrence: None)
  Receive Date: 20090204
  Receipt Date: 20080131
  Transmission Date: 20090719
  Serious: Yes (Hospitalization)
  Sender: FDA-Public Use
  Company Number: 270216

PATIENT
  Age: 66 Year
  Sex: Male

DRUGS (7)
  1. NOVOLOG [Suspect]
     Indication: TYPE 1 DIABETES MELLITUS
     Dosage: 32 LU, QD, SUBCUTAN.-PUMP
     Dates: start: 20050101
  2. NOVOLOG [Suspect]
  3. TERAZOSIN HCL [Concomitant]
  4. LOVASTATIN [Concomitant]
  5. LISINOPRIL [Concomitant]
  6. ZETIA [Concomitant]
  7. VITAMINS [Concomitant]

REACTIONS (1)
  - DIABETIC KETOACIDOSIS [None]
